FAERS Safety Report 8272960-2 (Version None)
Quarter: 2012Q2

REPORT INFORMATION
  Report Type: 
  Country: None (occurrence: None)
  Receive Date: 20120406
  Receipt Date: 20120406
  Transmission Date: 20120825
  Serious: Yes (Disabling)
  Sender: FDA-Public Use
  Company Number: None

PATIENT
  Sex: Female
  Weight: 68.0396 kg

DRUGS (1)
  1. LIVALO [Suspect]
     Indication: BLOOD CHOLESTEROL INCREASED
     Dosage: 2MG 1 DAILY
     Dates: start: 20120222, end: 20120321

REACTIONS (4)
  - ARTHRALGIA [None]
  - WEIGHT BEARING DIFFICULTY [None]
  - JOINT SWELLING [None]
  - PAIN IN EXTREMITY [None]
